FAERS Safety Report 24543296 (Version 1)
Quarter: 2024Q4

REPORT INFORMATION
  Report Type: Report from Study
  Country: US (occurrence: US)
  Receive Date: 20241024
  Receipt Date: 20241024
  Transmission Date: 20250114
  Serious: Yes (Hospitalization, Other)
  Sender: SERVIER
  Company Number: US-SERVIER-S24008249

PATIENT

DRUGS (3)
  1. TIBSOVO [Suspect]
     Active Substance: IVOSIDENIB
     Indication: Acute leukaemia
     Dosage: 250 MG, BID
     Route: 048
     Dates: start: 20240326
  2. TIBSOVO [Suspect]
     Active Substance: IVOSIDENIB
     Dosage: 250 MG, BID
     Route: 048
  3. TIBSOVO [Suspect]
     Active Substance: IVOSIDENIB
     Dosage: 250 MG, BID
     Route: 048

REACTIONS (6)
  - Urinary tract infection [Unknown]
  - Hospitalisation [Unknown]
  - Platelet count decreased [Unknown]
  - Back pain [Unknown]
  - Product use issue [Recovered/Resolved]
  - Drug ineffective [Recovered/Resolved]

NARRATIVE: CASE EVENT DATE: 20240101
